FAERS Safety Report 24201066 (Version 2)
Quarter: 2024Q3

REPORT INFORMATION
  Report Type: Spontaneous
  Country: US (occurrence: US)
  Receive Date: 20240812
  Receipt Date: 20240813
  Transmission Date: 20241017
  Serious: Yes (Hospitalization, Other)
  Sender: PURDUE
  Company Number: US-PURDUE-USA-2024-0311252

PATIENT
  Weight: 1.97 kg

DRUGS (2)
  1. DRONABINOL [Suspect]
     Active Substance: DRONABINOL
     Indication: Product used for unknown indication
     Dosage: UNK
     Route: 064
  2. METHAMPHETAMINE [Suspect]
     Active Substance: METHAMPHETAMINE
     Indication: Product used for unknown indication
     Dosage: UNK
     Route: 064

REACTIONS (16)
  - Congenital syphilis [Unknown]
  - Gonorrhoea [Unknown]
  - Neurosyphilis [Unknown]
  - Chlamydial infection [Unknown]
  - Neonatal respiratory failure [Unknown]
  - Hypoglycaemia neonatal [Unknown]
  - Hyperbilirubinaemia neonatal [Unknown]
  - Metabolic acidosis [Unknown]
  - Thrombocytopenia neonatal [Unknown]
  - Neonatal hypoacusis [Unknown]
  - Poor feeding infant [Unknown]
  - Haematochezia [Unknown]
  - Staphylococcal infection [Unknown]
  - Herpes simplex [Unknown]
  - Bone erosion [Unknown]
  - Foetal exposure during pregnancy [Unknown]
